FAERS Safety Report 8056506-X (Version None)
Quarter: 2012Q1

REPORT INFORMATION
  Report Type: 
  Country: None (occurrence: None)
  Receive Date: 20120119
  Receipt Date: 20111017
  Transmission Date: 20120608
  Serious: Yes (Hospitalization)
  Sender: FDA-Public Use
  Company Number: US-SANOFI-AVENTIS-2011SA069234

PATIENT
  Age: 68 Year
  Sex: Female

DRUGS (3)
  1. LASIX [Suspect]
     Route: 065
  2. ANTIHYPERTENSIVES [Suspect]
     Route: 048
  3. LASIX [Suspect]
     Indication: FLUID RETENTION
     Route: 065

REACTIONS (2)
  - BLOOD POTASSIUM DECREASED [None]
  - BLOOD SODIUM DECREASED [None]
